FAERS Safety Report 21949190 (Version 1)
Quarter: 2023Q1

REPORT INFORMATION
  Report Type: Spontaneous
  Country: US (occurrence: None)
  Receive Date: 20230202
  Receipt Date: 20230202
  Transmission Date: 20230418
  Serious: No
  Sender: FDA-Public Use
  Company Number: None

PATIENT
  Age: 44 Year
  Sex: Female

DRUGS (3)
  1. REMODULIN [Suspect]
     Active Substance: TREPROSTINIL
     Indication: Pulmonary arterial hypertension
     Dosage: OTHER QUANTITY : 158.18NG/KG/MIN;?OTHER FREQUENCY : CONTINUOUS;?
     Route: 042
     Dates: start: 202009
  2. DEVICE [Suspect]
     Active Substance: DEVICE
  3. DEVICE [Suspect]
     Active Substance: DEVICE

REACTIONS (10)
  - Fatigue [None]
  - Dyspnoea [None]
  - Drug delivery system malfunction [None]
  - Drug dose omission by device [None]
  - Device failure [None]
  - Dizziness [None]
  - Headache [None]
  - Pain [None]
  - Impaired work ability [None]
  - Product quality issue [None]

NARRATIVE: CASE EVENT DATE: 20230126
